FAERS Safety Report 20594692 (Version 1)
Quarter: 2022Q1

REPORT INFORMATION
  Report Type: Report from Study
  Country: US (occurrence: US)
  Receive Date: 20220315
  Receipt Date: 20220315
  Transmission Date: 20220424
  Serious: Yes (Hospitalization, Other)
  Sender: FDA-Public Use
  Company Number: US-BRISTOL-MYERS SQUIBB COMPANY-BMS-2022-037132

PATIENT
  Age: 77 Year
  Sex: Male
  Weight: 97.6 kg

DRUGS (2)
  1. NIVOLUMAB [Suspect]
     Active Substance: NIVOLUMAB
     Indication: Renal cell carcinoma
     Dosage: 295 MILLIGRAM
     Route: 042
     Dates: start: 20211028, end: 20211117
  2. IPILIMUMAB [Suspect]
     Active Substance: IPILIMUMAB
     Indication: Renal cell carcinoma
     Dosage: 98 MILLIGRAM
     Route: 042
     Dates: start: 20211028, end: 20211117

REACTIONS (4)
  - Hypophysitis [Recovered/Resolved]
  - Adrenal insufficiency [Recovered/Resolved]
  - Dehydration [Recovered/Resolved]
  - Nausea [Recovering/Resolving]

NARRATIVE: CASE EVENT DATE: 20211223
